FAERS Safety Report 8066553-X (Version None)
Quarter: 2012Q1

REPORT INFORMATION
  Report Type: 
  Country: None (occurrence: None)
  Receive Date: 20120124
  Receipt Date: 20120117
  Transmission Date: 20120608
  Serious: Yes (Other)
  Sender: FDA-Public Use
  Company Number: PHEH2012US001548

PATIENT
  Age: 59 Year
  Sex: Female

DRUGS (5)
  1. LOVASTATIN [Suspect]
     Dosage: 40 MG, QD
  2. LOVASTATIN [Suspect]
     Dosage: 40 MG, UNK
  3. DIOVAN [Suspect]
     Dosage: 160 MG, DAILY
  4. SUGAR PILLS [Concomitant]
     Indication: DIABETES MELLITUS
     Dosage: UNK UKN, UNK
  5. ASCORBIC ACID [Concomitant]
     Dosage: UNK UKN, UNK

REACTIONS (3)
  - PAIN IN EXTREMITY [None]
  - PAIN [None]
  - OSTEOARTHRITIS [None]
